FAERS Safety Report 19726744 (Version 1)
Quarter: 2021Q3

REPORT INFORMATION
  Report Type: Spontaneous
  Country: US (occurrence: US)
  Receive Date: 20210820
  Receipt Date: 20210820
  Transmission Date: 20211014
  Serious: Yes (Death)
  Sender: FDA-Public Use
  Company Number: None

PATIENT
  Age: 61 Year
  Sex: Male

DRUGS (2)
  1. N/A [Concomitant]
     Active Substance: UNSPECIFIED INGREDIENT
  2. OCTREOTIDE. [Suspect]
     Active Substance: OCTREOTIDE
     Indication: COLON CANCER
     Dosage: ?          OTHER FREQUENCY:3 TIMES DAILY;?
     Route: 058
     Dates: start: 20210814, end: 20210819

REACTIONS (1)
  - Death [None]

NARRATIVE: CASE EVENT DATE: 20210819
